FAERS Safety Report 12716902 (Version 2)
Quarter: 2016Q3

REPORT INFORMATION
  Report Type: Spontaneous
  Country: FR (occurrence: FR)
  Receive Date: 20160906
  Receipt Date: 20160919
  Transmission Date: 20161109
  Serious: Yes (Hospitalization, Other)
  Sender: FDA-Public Use
  Company Number: FR-PFIZER INC-2016403613

PATIENT
  Age: 17 Month
  Sex: Male
  Weight: 10 kg

DRUGS (9)
  1. DOXORUBICIN-TEVA [Suspect]
     Active Substance: DOXORUBICIN
     Indication: EWING^S SARCOMA
     Dosage: 6.8 MG, 1X/DAY
     Route: 042
     Dates: start: 20160420, end: 20160421
  2. SODIUM BICARBONATE. [Concomitant]
     Active Substance: SODIUM BICARBONATE
     Dosage: UNK
  3. MYCOSTATINE [Concomitant]
     Active Substance: NYSTATIN
     Dosage: UNK
  4. ZOPHREN [Concomitant]
     Active Substance: ONDANSETRON
     Dosage: UNK
  5. IFOSFAMIDE EG [Suspect]
     Active Substance: IFOSFAMIDE
     Indication: EWING^S SARCOMA
     Dosage: UNK
     Route: 042
     Dates: start: 20160420, end: 20160421
  6. MESNA EG [Concomitant]
     Active Substance: MESNA
     Dosage: UNK
  7. ETOPOPHOS [Suspect]
     Active Substance: ETOPOSIDE PHOSPHATE
     Indication: EWING^S SARCOMA
     Dosage: 50 MG, 1X/DAY
     Route: 042
     Dates: start: 20160420, end: 20160421
  8. GRANOCYTE [Concomitant]
     Active Substance: LENOGRASTIM
     Dosage: UNK
  9. VINCRISTINE SULFATE. [Suspect]
     Active Substance: VINCRISTINE SULFATE
     Indication: EWING^S SARCOMA
     Dosage: 0.5 MG, 1X/DAY
     Route: 042
     Dates: start: 20160420, end: 20160421

REACTIONS (1)
  - Encephalopathy [Recovered/Resolved]

NARRATIVE: CASE EVENT DATE: 20160422
